FAERS Safety Report 8970455 (Version 1)
Quarter: 2012Q4

REPORT INFORMATION
  Report Type: 
  Country: US (occurrence: US)
  Receive Date: 20121218
  Receipt Date: 20121218
  Transmission Date: 20130627
  Serious: Yes (Hospitalization)
  Sender: FDA-Public Use
  Company Number: US-BRISTOL-MYERS SQUIBB COMPANY-16501884

PATIENT
  Sex: Female

DRUGS (1)
  1. ABILIFY [Suspect]
     Dosage: Dose:2mg,increased to 4mg, then increased to 5mg.

REACTIONS (6)
  - Confusional state [Unknown]
  - Hallucination [Unknown]
  - Dry skin [Unknown]
  - Memory impairment [Unknown]
  - Balance disorder [Unknown]
  - Thinking abnormal [Unknown]
